FAERS Safety Report 4586646-9 (Version None)
Quarter: 2005Q1

REPORT INFORMATION
  Report Type: 
  Country: None (occurrence: None)
  Receive Date: 20050218
  Receipt Date: 20040915
  Transmission Date: 20050727
  Serious: No
  Sender: FDA-Public Use
  Company Number: US-BRISTOL-MYERS SQUIBB COMPANY-12704540

PATIENT
  Age: 40 Year
  Sex: Female
  Weight: 70 kg

DRUGS (5)
  1. TAXOL [Suspect]
     Indication: BREAST CANCER
     Route: 042
     Dates: start: 20040909, end: 20040909
  2. ANZEMET [Concomitant]
     Indication: PREMEDICATION
     Route: 042
     Dates: start: 20040909, end: 20040909
  3. DECADRON [Concomitant]
     Indication: PREMEDICATION
     Route: 042
     Dates: start: 20040909, end: 20040909
  4. DIPHENHYDRAMINE HCL [Concomitant]
     Indication: PREMEDICATION
     Route: 042
     Dates: start: 20040909, end: 20040909
  5. TAGAMET [Concomitant]
     Indication: PREMEDICATION
     Route: 042
     Dates: start: 20040909, end: 20040909

REACTIONS (1)
  - HYPERSENSITIVITY [None]
